FAERS Safety Report 11528943 (Version 1)
Quarter: 2015Q3

REPORT INFORMATION
  Report Type: Spontaneous
  Country: US (occurrence: None)
  Receive Date: 20150918
  Receipt Date: 20150918
  Transmission Date: 20151125
  Serious: No
  Sender: FDA-Public Use
  Company Number: None

PATIENT
  Age: 59 Year
  Sex: Female

DRUGS (2)
  1. H.P. ACTHAR [Suspect]
     Active Substance: CORTICOTROPIN
     Indication: DERMATOMYOSITIS
     Dosage: 80 UNITS
     Route: 058
     Dates: start: 20150801
  2. H.P. ACTHAR [Suspect]
     Active Substance: CORTICOTROPIN
     Indication: POLYMYOSITIS
     Dosage: 80 UNITS
     Route: 058
     Dates: start: 20150801

REACTIONS (1)
  - Conjunctival haemorrhage [None]

NARRATIVE: CASE EVENT DATE: 20150902
